FAERS Safety Report 6849955-6 (Version None)
Quarter: 2010Q3

REPORT INFORMATION
  Report Type: 
  Country: None (occurrence: None)
  Receive Date: 20100716
  Receipt Date: 20100706
  Transmission Date: 20110219
  Serious: Yes (Life-Threatening, Hospitalization)
  Sender: FDA-Public Use
  Company Number: GR-GILEAD-2010-0029881

PATIENT
  Sex: Male

DRUGS (2)
  1. ATRIPLA [Suspect]
     Indication: HIV INFECTION
     Dates: start: 20080601, end: 20100511
  2. BETAMETHASONE [Concomitant]

REACTIONS (3)
  - RASH MACULO-PAPULAR [None]
  - RENAL FAILURE [None]
  - VASCULITIS GASTROINTESTINAL [None]
